FAERS Safety Report 5823288-9 (Version None)
Quarter: 2008Q3

REPORT INFORMATION
  Report Type: 
  Country: None (occurrence: None)
  Receive Date: 20080724
  Receipt Date: 20080724
  Transmission Date: 20090109
  Serious: Yes (Hospitalization)
  Sender: FDA-Public Use
  Company Number: None

PATIENT
  Sex: Female
  Weight: 95.2554 kg

DRUGS (11)
  1. CLOZAPINE [Suspect]
     Indication: BIPOLAR DISORDER
     Dosage: CLOZAPINE 150 MG BID PO
     Route: 048
     Dates: start: 20080617, end: 20080702
  2. CLOZAPINE [Suspect]
     Indication: MANIA
     Dosage: CLOZAPINE 150 MG BID PO
     Route: 048
     Dates: start: 20080617, end: 20080702
  3. DEPAKOTE ER [Concomitant]
  4. ZYPREXA [Concomitant]
  5. RANITIDINE HCL [Concomitant]
  6. PRAVACHOL [Concomitant]
  7. ACYCLOVIR [Concomitant]
  8. FISH OIL [Concomitant]
  9. FOLATE [Concomitant]
  10. ECT TREATMENTS [Concomitant]
  11. ARICEPT [Concomitant]

REACTIONS (3)
  - ATRIAL FIBRILLATION [None]
  - MYOCARDITIS [None]
  - PERICARDITIS [None]
